FAERS Safety Report 9387523 (Version 4)
Quarter: 2014Q2

REPORT INFORMATION
  Report Type: Spontaneous
  Country: US (occurrence: US)
  Receive Date: 20130708
  Receipt Date: 20140421
  Transmission Date: 20141212
  Serious: Yes (Hospitalization, Other)
  Sender: FDA-Public Use
  Company Number: US-009507513-1307USA001923

PATIENT
  Sex: Female

DRUGS (9)
  1. FOSAMAX [Suspect]
     Indication: OSTEOPENIA
     Dosage: 70 MG, UNK
     Route: 048
     Dates: start: 200101, end: 20080215
  2. ALENDRONATE SODIUM [Suspect]
     Indication: OSTEOPENIA
     Dosage: 70 MG, UNK
     Route: 048
     Dates: start: 20080215, end: 20090603
  3. CHONDROITIN SULFATE SODIUM (+) GLUCOSAMINE SULFATE [Concomitant]
     Dosage: 1000/800 MG, QD
     Dates: start: 2000
  4. OMEGA-3 [Concomitant]
     Dosage: 1 DF, QD
     Dates: start: 2000
  5. VITAMIN D (UNSPECIFIED) [Concomitant]
     Dosage: 1000 IU, QD
     Dates: start: 2000
  6. CALCIUM (UNSPECIFIED) [Concomitant]
     Dosage: 1200 MG, QD
     Dates: start: 2000
  7. MAGNESIUM (UNSPECIFIED) (+) ZINC (UNSPECIFIED) [Concomitant]
     Dosage: 500MG/15MG, QD
     Dates: start: 2000
  8. VITAMINS (UNSPECIFIED) [Concomitant]
     Dosage: 1 DF, QD
     Dates: start: 2000
  9. ASCORBIC ACID [Concomitant]
     Dosage: 100 MG, QD
     Dates: start: 2000

REACTIONS (5)
  - Foot fracture [Unknown]
  - Femur fracture [Unknown]
  - Cartilage injury [Unknown]
  - Spinal pain [Recovered/Resolved]
  - Neck pain [Recovered/Resolved]
